FAERS Safety Report 9207873 (Version 2)
Quarter: 2013Q2

REPORT INFORMATION
  Report Type: Spontaneous
  Country: JP (occurrence: JP)
  Receive Date: 20130403
  Receipt Date: 20130426
  Transmission Date: 20140414
  Serious: Yes (Other)
  Sender: FDA-Public Use
  Company Number: JP-VIIV HEALTHCARE LIMITED-B0879087A

PATIENT
  Age: 46 Year
  Sex: Male
  Weight: 95 kg

DRUGS (7)
  1. EPZICOM [Suspect]
     Indication: HIV INFECTION
     Route: 048
     Dates: start: 2010
  2. LEXIVA [Suspect]
     Indication: HIV INFECTION
     Route: 048
     Dates: start: 2010
  3. NORVIR SOFT GELATIN CAPSULES [Suspect]
     Indication: HIV INFECTION
     Route: 048
     Dates: start: 2010
  4. ABILIFY [Suspect]
     Indication: SCHIZOPHRENIA
     Route: 048
     Dates: start: 2010
  5. BLOPRESS [Concomitant]
     Indication: BLOOD PRESSURE MANAGEMENT
     Route: 048
  6. AMLODIN [Concomitant]
     Indication: BLOOD PRESSURE MANAGEMENT
     Route: 048
  7. BAYASPIRIN [Concomitant]
     Indication: BLOOD PRESSURE MANAGEMENT
     Route: 048

REACTIONS (3)
  - Diabetes mellitus inadequate control [Not Recovered/Not Resolved]
  - Glycosylated haemoglobin increased [Not Recovered/Not Resolved]
  - Treatment noncompliance [None]
